FAERS Safety Report 21785386 (Version 1)
Quarter: 2022Q4

REPORT INFORMATION
  Report Type: Spontaneous
  Country: BE (occurrence: BE)
  Receive Date: 20221227
  Receipt Date: 20221227
  Transmission Date: 20230113
  Serious: Yes (Hospitalization, Other)
  Sender: FDA-Public Use
  Company Number: BE-ORGANON-O2212BEL001850

PATIENT
  Sex: Male
  Weight: 59.5 kg

DRUGS (48)
  1. BETAMETHASONE DIPROPIONATE [Suspect]
     Active Substance: BETAMETHASONE DIPROPIONATE
     Indication: Dermatitis atopic
     Dosage: 0.05%, 2/DAYS
     Route: 061
     Dates: start: 20191001, end: 20191002
  2. BETAMETHASONE DIPROPIONATE [Suspect]
     Active Substance: BETAMETHASONE DIPROPIONATE
     Dosage: 0.05%, 2/DAYS
     Route: 061
     Dates: start: 20191002, end: 20191008
  3. BETAMETHASONE DIPROPIONATE [Suspect]
     Active Substance: BETAMETHASONE DIPROPIONATE
     Dosage: 0.05%, EVERY 1 DAYS
     Route: 061
     Dates: start: 20191009, end: 20191015
  4. BETAMETHASONE DIPROPIONATE [Suspect]
     Active Substance: BETAMETHASONE DIPROPIONATE
     Dosage: 0.05%, EVERY 1 DAYS
     Route: 061
     Dates: start: 20191016, end: 20191028
  5. BETAMETHASONE DIPROPIONATE [Suspect]
     Active Substance: BETAMETHASONE DIPROPIONATE
     Dosage: 0.064%, EVERY 1 DAYS
     Route: 061
     Dates: start: 20210510, end: 20210803
  6. BETAMETHASONE DIPROPIONATE [Suspect]
     Active Substance: BETAMETHASONE DIPROPIONATE
     Dosage: 0.064%, EVERY 1 DAYS
     Route: 061
     Dates: start: 20210807, end: 20211027
  7. BETAMETHASONE DIPROPIONATE [Suspect]
     Active Substance: BETAMETHASONE DIPROPIONATE
     Dosage: 0.064%, EVERY 1 DAYS
     Route: 061
     Dates: start: 20210428, end: 20210509
  8. BETAMETHASONE DIPROPIONATE [Suspect]
     Active Substance: BETAMETHASONE DIPROPIONATE
     Dosage: 0.064%, 2/WEEKS
     Route: 061
     Dates: start: 20211028, end: 20220401
  9. BETAMETHASONE DIPROPIONATE [Suspect]
     Active Substance: BETAMETHASONE DIPROPIONATE
     Dosage: 0.064 %, 3/WEEKS
     Route: 061
     Dates: start: 20220414, end: 20220824
  10. MOMETASONE FUROATE [Suspect]
     Active Substance: MOMETASONE FUROATE
     Indication: Dermatitis atopic
     Dosage: 0.1%, 2/DAYS
     Route: 061
     Dates: start: 20191002, end: 20191008
  11. MOMETASONE FUROATE [Suspect]
     Active Substance: MOMETASONE FUROATE
     Dosage: 0.1%, EVERY 1 DAYS
     Route: 061
     Dates: start: 20191009, end: 20191015
  12. UPADACITINIB [Suspect]
     Active Substance: UPADACITINIB
     Indication: Dermatitis atopic
     Dosage: UNK
     Dates: start: 20190902, end: 20191229
  13. UPADACITINIB [Suspect]
     Active Substance: UPADACITINIB
     Dosage: UNK
     Dates: start: 20191230, end: 20221122
  14. TRIAMCINOLONE ACETONIDE [Suspect]
     Active Substance: TRIAMCINOLONE ACETONIDE
     Indication: Dermatitis atopic
     Dosage: 0.1 %, EVERY 1 DAYS
     Route: 061
     Dates: start: 20190902, end: 20190923
  15. TRIAMCINOLONE ACETONIDE [Suspect]
     Active Substance: TRIAMCINOLONE ACETONIDE
     Dosage: 0.1%, EVERY 1 DAYS
     Route: 061
     Dates: start: 20191001, end: 20191002
  16. TRIAMCINOLONE ACETONIDE [Suspect]
     Active Substance: TRIAMCINOLONE ACETONIDE
     Dosage: 0.1%, EVERY 1 DAYS
     Route: 061
     Dates: start: 20191016, end: 20191106
  17. TRIAMCINOLONE ACETONIDE [Suspect]
     Active Substance: TRIAMCINOLONE ACETONIDE
     Dosage: 0.1%, EVERY 1 DAYS
     Route: 061
     Dates: start: 20191125, end: 20191215
  18. TRIAMCINOLONE ACETONIDE [Suspect]
     Active Substance: TRIAMCINOLONE ACETONIDE
     Dosage: 0.1%, 2/ DAYS
     Route: 061
     Dates: start: 20191125, end: 20191215
  19. TRIAMCINOLONE ACETONIDE [Suspect]
     Active Substance: TRIAMCINOLONE ACETONIDE
     Dosage: 0.1%, EVERY 1 DAYS
     Route: 061
     Dates: start: 20191223, end: 20200113
  20. TRIAMCINOLONE ACETONIDE [Suspect]
     Active Substance: TRIAMCINOLONE ACETONIDE
     Dosage: 0.1%, 3/WEEKS
     Route: 061
     Dates: start: 20191223, end: 20200113
  21. TRIAMCINOLONE ACETONIDE [Suspect]
     Active Substance: TRIAMCINOLONE ACETONIDE
     Dosage: 0.1%, EVERY 2 DAYS
     Route: 061
     Dates: start: 20201208, end: 20201217
  22. TRIAMCINOLONE ACETONIDE [Suspect]
     Active Substance: TRIAMCINOLONE ACETONIDE
     Dosage: UNK UNK, QW
     Route: 061
     Dates: start: 20220402, end: 20220411
  23. TRIAMCINOLONE ACETONIDE [Suspect]
     Active Substance: TRIAMCINOLONE ACETONIDE
     Dosage: 0.1%, 3/WEEKS
     Route: 061
     Dates: start: 20220720, end: 20220811
  24. TRIAMCINOLONE ACETONIDE [Suspect]
     Active Substance: TRIAMCINOLONE ACETONIDE
     Dosage: 0.1%, EVERY 1 DAYS
     Route: 061
     Dates: start: 20210127, end: 20210130
  25. HYDROCORTISONE [Suspect]
     Active Substance: HYDROCORTISONE
     Indication: Dermatitis atopic
     Dosage: 1%, EVERY 1 DAYS
     Route: 061
     Dates: start: 20190902, end: 20190930
  26. HYDROCORTISONE [Suspect]
     Active Substance: HYDROCORTISONE
     Dosage: 1 %, EVERY 1 DAYS
     Route: 061
     Dates: start: 20191107, end: 20191114
  27. HYDROCORTISONE [Suspect]
     Active Substance: HYDROCORTISONE
     Dosage: 1 %, EVERY 1 DAYS
     Route: 061
     Dates: start: 20191117, end: 20191124
  28. HYDROCORTISONE [Suspect]
     Active Substance: HYDROCORTISONE
     Dosage: 1 %, EVERY 1 DAYS
     Route: 061
     Dates: start: 20191216, end: 20191223
  29. HYDROCORTISONE [Suspect]
     Active Substance: HYDROCORTISONE
     Dosage: 1 %, AS NECESSARY
     Route: 061
     Dates: start: 20200114
  30. ALPRAZOLAM [Concomitant]
     Active Substance: ALPRAZOLAM
     Indication: Pruritus
     Dosage: 25 MILLIGRAM, AS NECESSARY
     Dates: start: 200609
  31. ALPRAZOLAM [Concomitant]
     Active Substance: ALPRAZOLAM
     Indication: Rhinitis
  32. RUPATALL [Concomitant]
     Indication: Pruritus
     Dosage: 10 MG, EVERY 1 DAYS
     Dates: start: 20190128
  33. RUPATALL [Concomitant]
     Indication: Rhinitis
  34. LEVOCETIRIZINE DIHYDROCHLORIDE [Concomitant]
     Active Substance: LEVOCETIRIZINE DIHYDROCHLORIDE
     Indication: Pruritus
     Dosage: 5 MG, EVERY 1 DAYS
     Dates: start: 20190128
  35. LEVOCETIRIZINE DIHYDROCHLORIDE [Concomitant]
     Active Substance: LEVOCETIRIZINE DIHYDROCHLORIDE
     Indication: Rhinitis
  36. ACETAMINOPHEN [Concomitant]
     Active Substance: ACETAMINOPHEN
     Indication: Restless legs syndrome
     Dosage: 1 G, AS NECESSARY
     Dates: start: 2013
  37. STEOVIT FORTE [Concomitant]
     Indication: Osteonecrosis
     Dosage: 1G, EVERY 1 DAYS
     Dates: start: 20190129
  38. STEOVIT FORTE [Concomitant]
     Indication: Osteoporosis prophylaxis
  39. DIMETHINDENE [Concomitant]
     Active Substance: DIMETHINDENE
     Indication: Pruritus
     Dosage: 30 DROPS, AS NECESSARY
     Dates: start: 20191002
  40. CETAPHIL [CETYL ALCOHOL;PROPYLENE GLYCOL;SODIUM LAURYL SULFATE;STEARYL [Concomitant]
     Indication: Prophylaxis
     Dosage: 1 APPLICATION, AS NECESSARY
     Dates: start: 20191002
  41. PRAMIPEXOL [PRAMIPEXOLE DIHYDROCHLORIDE] [Concomitant]
     Indication: Restless legs syndrome
     Dosage: 0.18 MILLIGRAM, EVERY 1 DAYS
     Dates: start: 20200928
  42. UREUM [Concomitant]
     Indication: Dry skin prophylaxis
     Dosage: 5 % COLD CREAM, 2/DAYS
     Dates: start: 20200907
  43. BISOPROLOL FUMARATE [Concomitant]
     Active Substance: BISOPROLOL FUMARATE
     Indication: Bundle branch block left
     Dosage: 5 MILLIGRAM, EVERY 1 DAYS
     Dates: start: 20220119
  44. COVERAM [Concomitant]
     Active Substance: AMLODIPINE\PERINDOPRIL
     Indication: Hypertension
     Dosage: 10/10 MG, EVERY 1 DAYS
     Dates: start: 20220119
  45. LOCOID CRELO [Concomitant]
     Indication: Dermatitis atopic
     Dosage: 1 APPLICATION, 2/WEEKS
     Dates: start: 202101
  46. LORMETAZEPAM [Concomitant]
     Active Substance: LORMETAZEPAM
     Indication: Depressed mood
     Dosage: 2 MILLIGRAM, EVERY 1 DAYS
     Dates: start: 20220705
  47. ESCITALOPRAM OXALATE [Concomitant]
     Active Substance: ESCITALOPRAM OXALATE
     Indication: Mood altered
     Dosage: 10 MILLIGRAM, EVERY 1 DAYS
     Dates: start: 20220701
  48. SPIRONOLACTONE [Concomitant]
     Active Substance: SPIRONOLACTONE
     Indication: Bundle branch block left
     Dosage: 25 MG, EVERY 1 DAYS
     Dates: start: 20220119

REACTIONS (10)
  - Aortic dissection [Unknown]
  - Suicidal ideation [Unknown]
  - Herpes ophthalmic [Not Recovered/Not Resolved]
  - Blindness [Unknown]
  - Condition aggravated [Unknown]
  - Noninfective conjunctivitis [Unknown]
  - Conjunctivitis [Unknown]
  - SARS-CoV-2 test positive [Unknown]
  - Conjunctivitis [Unknown]
  - Wrist fracture [Unknown]

NARRATIVE: CASE EVENT DATE: 20191029
